FAERS Safety Report 20758508 (Version 1)
Quarter: 2022Q2

REPORT INFORMATION
  Report Type: Spontaneous
  Country: US (occurrence: US)
  Receive Date: 20220427
  Receipt Date: 20220427
  Transmission Date: 20220720
  Serious: No
  Sender: FDA-Public Use
  Company Number: US-BRISTOL-MYERS SQUIBB COMPANY-2022-028342

PATIENT
  Age: 65 Year
  Sex: Male
  Weight: 89 kg

DRUGS (1)
  1. REVLIMID [Suspect]
     Active Substance: LENALIDOMIDE
     Indication: Plasma cell myeloma
     Dosage: DAILY * 14 DAYS ON AND 7 DAYS OFF
     Route: 048
     Dates: start: 20211221

REACTIONS (2)
  - Constipation [Not Recovered/Not Resolved]
  - Rhinorrhoea [Not Recovered/Not Resolved]
